FAERS Safety Report 7415521-7 (Version None)
Quarter: 2011Q2

REPORT INFORMATION
  Report Type: 
  Country: None (occurrence: None)
  Receive Date: 20110414
  Receipt Date: 20110404
  Transmission Date: 20111010
  Serious: Yes (Other)
  Sender: FDA-Public Use
  Company Number: US-JNJFOC-2011001253

PATIENT
  Sex: Female

DRUGS (4)
  1. VITAMIN A [Concomitant]
     Indication: PRODUCT USED FOR UNKNOWN INDICATION
     Dosage: DAILY DOSE TEXT: ONCE DAILY
     Route: 065
  2. ASCORBIC ACID [Concomitant]
     Indication: PRODUCT USED FOR UNKNOWN INDICATION
     Dosage: DAILY DOSE TEXT: ONCE DAILY
     Route: 065
  3. VITAMIN D [Concomitant]
     Indication: PRODUCT USED FOR UNKNOWN INDICATION
     Dosage: DAILY DOSE TEXT: ONCE DAILY
     Route: 065
  4. NEOSPORIN [Suspect]
     Indication: LIP DRY
     Dosage: DAILY DOSE TEXT: ^DOT^ ONCE DAILY
     Route: 061
     Dates: start: 20110112, end: 20110112

REACTIONS (1)
  - DERMATITIS [None]
